FAERS Safety Report 7284303-1 (Version None)
Quarter: 2011Q1

REPORT INFORMATION
  Report Type: 
  Country: None (occurrence: None)
  Receive Date: 20110209
  Receipt Date: 20110131
  Transmission Date: 20110831
  Serious: Yes (Hospitalization)
  Sender: FDA-Public Use
  Company Number: US-WATSON-2011-01393

PATIENT
  Age: 79 Year
  Sex: Male

DRUGS (3)
  1. METRONIDAZOLE [Suspect]
     Indication: DIVERTICULITIS
     Dosage: UNK
     Route: 065
  2. CIPROFLOXACIN HCL [Suspect]
     Indication: DIVERTICULITIS
     Dosage: UNK
     Route: 065
  3. GLIMEPIRIDE [Suspect]
     Indication: TYPE 2 DIABETES MELLITUS
     Dosage: 1 MG, DAILY
     Route: 048

REACTIONS (3)
  - RENAL FAILURE ACUTE [None]
  - HYPOGLYCAEMIA [None]
  - INHIBITORY DRUG INTERACTION [None]
